FAERS Safety Report 4579183-9 (Version None)
Quarter: 2005Q1

REPORT INFORMATION
  Report Type: 
  Country: None (occurrence: None)
  Receive Date: 20050208
  Receipt Date: 20050208
  Transmission Date: 20050727
  Serious: Yes (Other)
  Sender: FDA-Public Use
  Company Number: None

PATIENT
  Age: 32 Year
  Sex: Female
  Weight: 68.0396 kg

DRUGS (1)
  1. IMITREX [Suspect]
     Indication: MIGRAINE
     Dosage: 1   DAILY  ORAL
     Route: 048
     Dates: start: 20040612, end: 20041217

REACTIONS (2)
  - MOVEMENT DISORDER [None]
  - TRISMUS [None]
